FAERS Safety Report 12458456 (Version 1)
Quarter: 2016Q2

REPORT INFORMATION
  Report Type: Spontaneous
  Country: US (occurrence: None)
  Receive Date: 20160610
  Receipt Date: 20160610
  Transmission Date: 20160815
  Serious: No
  Sender: FDA-Public Use
  Company Number: None

PATIENT
  Age: 22 Year
  Sex: Female

DRUGS (1)
  1. NEULASTA [Suspect]
     Active Substance: PEGFILGRASTIM
     Indication: PAIN
     Dosage: 6MG/0.6ML PFS 1SYR ONE TIME, PT C SC
     Route: 058
     Dates: start: 20160426

REACTIONS (1)
  - Bone pain [None]

NARRATIVE: CASE EVENT DATE: 201604
